FAERS Safety Report 12755404 (Version 1)
Quarter: 2016Q3

REPORT INFORMATION
  Report Type: Spontaneous
  Country: US (occurrence: US)
  Receive Date: 20160916
  Receipt Date: 20160916
  Transmission Date: 20161109
  Serious: No
  Sender: FDA-Public Use
  Company Number: US-NAVIDEA BIOPHARMACEUTICALS-NVUS1600-16-00017

PATIENT
  Age: 82 Year
  Sex: Female

DRUGS (2)
  1. LYMPHAZURIN [Suspect]
     Active Substance: ISOSULFAN BLUE
     Dates: start: 20160831, end: 20160831
  2. LYMPHOSEEK [Suspect]
     Active Substance: TECHNETIUM TC-99M TILMANOCEPT
     Indication: LYMPHATIC MAPPING
     Dosage: MASS DOSE 50MCG
     Route: 023
     Dates: start: 20160831, end: 20160831

REACTIONS (1)
  - Hypotension [Recovered/Resolved]

NARRATIVE: CASE EVENT DATE: 20160831
